FAERS Safety Report 22301726 (Version 2)
Quarter: 2023Q2

REPORT INFORMATION
  Report Type: Report from Study
  Country: CA (occurrence: CA)
  Receive Date: 20230510
  Receipt Date: 20230511
  Transmission Date: 20230722
  Serious: Yes (Other)
  Sender: FDA-Public Use
  Company Number: CA-JNJFOC-20230463846

PATIENT
  Age: 68 Year
  Sex: Female
  Weight: 86 kg

DRUGS (1)
  1. REMICADE [Suspect]
     Active Substance: INFLIXIMAB
     Indication: Crohn^s disease
     Dosage: PATIENT ALSO RECEIVED DOSE ON 30-MAY-2007, DOSE DUE ON 09-MAY-2023
     Route: 042
     Dates: start: 20070219

REACTIONS (3)
  - Pneumonia [Unknown]
  - COVID-19 [Unknown]
  - Nasopharyngitis [Recovered/Resolved]

NARRATIVE: CASE EVENT DATE: 20230505
